FAERS Safety Report 4454521-6 (Version None)
Quarter: 2004Q3

REPORT INFORMATION
  Report Type: 
  Country: None (occurrence: None)
  Receive Date: 20040917
  Receipt Date: 20040917
  Transmission Date: 20050211
  Serious: Yes (Hospitalization)
  Sender: FDA-Public Use
  Company Number: None

PATIENT
  Age: 41 Year
  Sex: Female
  Weight: 72.5755 kg

DRUGS (2)
  1. ALPRAZOLAM [Suspect]
     Indication: MAJOR DEPRESSION
     Dosage: 0.5 TID
  2. FLUOXETINE [Suspect]
     Indication: PANIC DISORDER
     Dosage: 40 MG

REACTIONS (2)
  - CONDITION AGGRAVATED [None]
  - PHARMACEUTICAL PRODUCT COMPLAINT [None]
